FAERS Safety Report 15588872 (Version 2)
Quarter: 2019Q1

REPORT INFORMATION
  Report Type: Report from Study
  Country: AU (occurrence: AU)
  Receive Date: 20181106
  Receipt Date: 20190123
  Transmission Date: 20190417
  Serious: Yes (Hospitalization)
  Sender: FDA-Public Use
  Company Number: AU-ROCHE-2208676

PATIENT
  Age: 61 Year
  Sex: Female
  Weight: 64 kg

DRUGS (2)
  1. RO 6870810 (BET INHIBITOR) [Suspect]
     Active Substance: RO-6870810
     Indication: DIFFUSE LARGE B-CELL LYMPHOMA
     Dosage: DOSE AND DATE OF MOST RECENT RO6870810 ADMINISTERED  PRIOR TO AE ONSET: 0.65 MG/KG, 17/OCT/2018 AT 1
     Route: 058
     Dates: start: 20180925
  2. VENETOCLAX. [Suspect]
     Active Substance: VENETOCLAX
     Indication: DIFFUSE LARGE B-CELL LYMPHOMA
     Dosage: DOSE AND DATE OF MOST RECENT VENETOCLAX ADMINISTERED PRIOR TO AE ONSET: 600MG AND 17/OCT/2018 AT 12:
     Route: 048
     Dates: start: 20180925

REACTIONS (2)
  - Haematuria [Not Recovered/Not Resolved]
  - Lower gastrointestinal haemorrhage [Not Recovered/Not Resolved]

NARRATIVE: CASE EVENT DATE: 20181030
